FAERS Safety Report 5154546-1 (Version None)
Quarter: 2006Q4

REPORT INFORMATION
  Report Type: 
  Country: None (occurrence: None)
  Receive Date: 20061113
  Receipt Date: 20061023
  Transmission Date: 20070319
  Serious: Yes (Hospitalization)
  Sender: FDA-Public Use
  Company Number: ENT 2006-0068

PATIENT
  Age: 76 Year
  Sex: Female

DRUGS (11)
  1. COMTESS (ENTACAPONE) [Suspect]
     Indication: PARKINSON'S DISEASE
     Dosage: 1200 + 600 MG (200 MG, 6 IN 1 D)
     Dates: start: 20051201
  2. COMTESS (ENTACAPONE) [Suspect]
     Indication: PARKINSON'S DISEASE
     Dosage: 1200 + 600 MG (200 MG, 6 IN 1 D)
     Dates: start: 20060501
  3. KARDOPAL (LEVODOPA, CARBIDOPA) [Concomitant]
  4. SINEMET DEPOT [Concomitant]
  5. ATACAND [Concomitant]
  6. THYROXIN (LEVOTHYROXINE) [Concomitant]
  7. PULMICORT [Concomitant]
  8. SEREVENT [Concomitant]
  9. IMDUR DEPOT [Concomitant]
  10. METOPROLOL SUCCINATE [Concomitant]
  11. BRICANYL [Concomitant]

REACTIONS (30)
  - AGGRESSION [None]
  - ANOREXIA [None]
  - ANTIGLIADIN ANTIBODY POSITIVE [None]
  - ASTHMA [None]
  - ATROPHY [None]
  - BACTERIA URINE IDENTIFIED [None]
  - BEDRIDDEN [None]
  - CHEST PAIN [None]
  - CLOSTRIDIUM DIFFICILE TOXIN TEST POSITIVE [None]
  - COLITIS MICROSCOPIC [None]
  - CONVULSION [None]
  - DEMENTIA [None]
  - DIARRHOEA [None]
  - DYSKINESIA [None]
  - ELECTROENCEPHALOGRAM ABNORMAL [None]
  - ENDOSCOPY UPPER GASTROINTESTINAL TRACT ABNORMAL [None]
  - ESCHERICHIA INFECTION [None]
  - FATIGUE [None]
  - GENERAL PHYSICAL HEALTH DETERIORATION [None]
  - HALLUCINATION [None]
  - INAPPROPRIATE ANTIDIURETIC HORMONE SECRETION [None]
  - INFLAMMATION [None]
  - MALLORY-WEISS SYNDROME [None]
  - MEMORY IMPAIRMENT [None]
  - MOOD ALTERED [None]
  - NORMOCHROMIC NORMOCYTIC ANAEMIA [None]
  - ORTHOSTATIC HYPOTENSION [None]
  - PARANOIA [None]
  - URINARY TRACT INFECTION [None]
  - WEIGHT DECREASED [None]
